FAERS Safety Report 4953877-5 (Version None)
Quarter: 2006Q1

REPORT INFORMATION
  Report Type: 
  Country: None (occurrence: None)
  Receive Date: 20060324
  Receipt Date: 20060324
  Transmission Date: 20060701
  Serious: Yes (Hospitalization)
  Sender: FDA-Public Use
  Company Number: None

PATIENT
  Age: 63 Year
  Sex: Male
  Weight: 71 kg

DRUGS (5)
  1. HYDROCHLOROTHIAZIDE [Suspect]
     Indication: HYPERTENSION
     Dosage: 12.5 MG QD
  2. AVAPRO [Concomitant]
  3. IBUPROFEN [Concomitant]
  4. CARISOPRODOL [Concomitant]
  5. DARVOCET [Concomitant]

REACTIONS (3)
  - COUGH [None]
  - DEHYDRATION [None]
  - MALAISE [None]
